FAERS Safety Report 25755469 (Version 1)
Quarter: 2025Q3

REPORT INFORMATION
  Report Type: Spontaneous
  Country: US (occurrence: US)
  Receive Date: 20250903
  Receipt Date: 20250903
  Transmission Date: 20251020
  Serious: Yes (Hospitalization)
  Sender: MYLAN
  Company Number: US-MYLANLABS-2025M1074426

PATIENT
  Age: 14 Year
  Sex: Male

DRUGS (48)
  1. CLOZAPINE [Suspect]
     Active Substance: CLOZAPINE
     Indication: Bipolar disorder
     Dosage: 200 MILLIGRAM, QD
  2. CLOZAPINE [Suspect]
     Active Substance: CLOZAPINE
     Dosage: 200 MILLIGRAM, QD
  3. CLOZAPINE [Suspect]
     Active Substance: CLOZAPINE
     Dosage: 200 MILLIGRAM, QD
     Route: 065
  4. CLOZAPINE [Suspect]
     Active Substance: CLOZAPINE
     Dosage: 200 MILLIGRAM, QD
     Route: 065
  5. CLOZAPINE [Suspect]
     Active Substance: CLOZAPINE
     Dosage: 100 MILLIGRAM, QD
  6. CLOZAPINE [Suspect]
     Active Substance: CLOZAPINE
     Dosage: 100 MILLIGRAM, QD
  7. CLOZAPINE [Suspect]
     Active Substance: CLOZAPINE
     Dosage: 100 MILLIGRAM, QD
     Route: 065
  8. CLOZAPINE [Suspect]
     Active Substance: CLOZAPINE
     Dosage: 100 MILLIGRAM, QD
     Route: 065
  9. DEXMEDETOMIDINE [Suspect]
     Active Substance: DEXMEDETOMIDINE
     Indication: Bipolar disorder
  10. DEXMEDETOMIDINE [Suspect]
     Active Substance: DEXMEDETOMIDINE
     Route: 065
  11. DEXMEDETOMIDINE [Suspect]
     Active Substance: DEXMEDETOMIDINE
     Route: 065
  12. DEXMEDETOMIDINE [Suspect]
     Active Substance: DEXMEDETOMIDINE
  13. VALPROATE [Suspect]
     Active Substance: VALPROIC ACID
     Indication: Bipolar disorder
  14. VALPROATE [Suspect]
     Active Substance: VALPROIC ACID
     Route: 065
  15. VALPROATE [Suspect]
     Active Substance: VALPROIC ACID
     Route: 065
  16. VALPROATE [Suspect]
     Active Substance: VALPROIC ACID
  17. LITHIUM [Suspect]
     Active Substance: LITHIUM
     Indication: Bipolar disorder
  18. LITHIUM [Suspect]
     Active Substance: LITHIUM
     Route: 065
  19. LITHIUM [Suspect]
     Active Substance: LITHIUM
     Route: 065
  20. LITHIUM [Suspect]
     Active Substance: LITHIUM
  21. CHLORPROMAZINE [Suspect]
     Active Substance: CHLORPROMAZINE
     Indication: Bipolar disorder
  22. CHLORPROMAZINE [Suspect]
     Active Substance: CHLORPROMAZINE
     Route: 065
  23. CHLORPROMAZINE [Suspect]
     Active Substance: CHLORPROMAZINE
     Route: 065
  24. CHLORPROMAZINE [Suspect]
     Active Substance: CHLORPROMAZINE
  25. GLYCOPYRROLATE [Suspect]
     Active Substance: GLYCOPYRROLATE
     Indication: Drooling
  26. GLYCOPYRROLATE [Suspect]
     Active Substance: GLYCOPYRROLATE
     Route: 065
  27. GLYCOPYRROLATE [Suspect]
     Active Substance: GLYCOPYRROLATE
     Route: 065
  28. GLYCOPYRROLATE [Suspect]
     Active Substance: GLYCOPYRROLATE
  29. DOCUSATE [Suspect]
     Active Substance: DOCUSATE
     Indication: Prophylaxis
  30. DOCUSATE [Suspect]
     Active Substance: DOCUSATE
     Route: 065
  31. DOCUSATE [Suspect]
     Active Substance: DOCUSATE
     Route: 065
  32. DOCUSATE [Suspect]
     Active Substance: DOCUSATE
  33. POLYETHYLENE GLYCOL [Suspect]
     Active Substance: POLYETHYLENE GLYCOL
     Indication: Prophylaxis
  34. POLYETHYLENE GLYCOL [Suspect]
     Active Substance: POLYETHYLENE GLYCOL
     Route: 065
  35. POLYETHYLENE GLYCOL [Suspect]
     Active Substance: POLYETHYLENE GLYCOL
     Route: 065
  36. POLYETHYLENE GLYCOL [Suspect]
     Active Substance: POLYETHYLENE GLYCOL
  37. SENNA [Suspect]
     Active Substance: SENNOSIDES
     Indication: Prophylaxis
  38. SENNA [Suspect]
     Active Substance: SENNOSIDES
     Route: 065
  39. SENNA [Suspect]
     Active Substance: SENNOSIDES
     Route: 065
  40. SENNA [Suspect]
     Active Substance: SENNOSIDES
  41. OLANZAPINE [Concomitant]
     Active Substance: OLANZAPINE
     Indication: Bipolar disorder
  42. OLANZAPINE [Concomitant]
     Active Substance: OLANZAPINE
     Route: 065
  43. OLANZAPINE [Concomitant]
     Active Substance: OLANZAPINE
     Route: 065
  44. OLANZAPINE [Concomitant]
     Active Substance: OLANZAPINE
  45. QUETIAPINE [Concomitant]
     Active Substance: QUETIAPINE
     Indication: Product used for unknown indication
  46. QUETIAPINE [Concomitant]
     Active Substance: QUETIAPINE
     Route: 065
  47. QUETIAPINE [Concomitant]
     Active Substance: QUETIAPINE
     Route: 065
  48. QUETIAPINE [Concomitant]
     Active Substance: QUETIAPINE

REACTIONS (6)
  - Drug ineffective for unapproved indication [Unknown]
  - Drooling [Unknown]
  - Sedation [Unknown]
  - Aspiration [Unknown]
  - Respiratory failure [Unknown]
  - Off label use [Unknown]
